FAERS Safety Report 5712138-7 (Version None)
Quarter: 2008Q2

REPORT INFORMATION
  Report Type: 
  Country: None (occurrence: None)
  Receive Date: 20080421
  Receipt Date: 20080421
  Transmission Date: 20081010
  Serious: Yes (Other)
  Sender: FDA-Public Use
  Company Number: None

PATIENT
  Sex: Female
  Weight: 6 kg

DRUGS (1)
  1. ZYRTEC [Suspect]
     Indication: SEASONAL ALLERGY
     Dosage: 1/2 TEASPOON 1 TIME PO 1 DOSE
     Route: 048
     Dates: start: 20080419, end: 20080419

REACTIONS (1)
  - HALLUCINATION, VISUAL [None]
